FAERS Safety Report 6044127-X (Version None)
Quarter: 2009Q1

REPORT INFORMATION
  Report Type: 
  Country: None (occurrence: None)
  Receive Date: 20090120
  Receipt Date: 20090113
  Transmission Date: 20090719
  Serious: Yes (Hospitalization)
  Sender: FDA-Public Use
  Company Number: BR-ABBOTT-08P-020-0486577-00

PATIENT
  Sex: Female
  Weight: 43.8 kg

DRUGS (2)
  1. RITONAVIR SOFT GELATIN CAPSULES [Suspect]
     Indication: HIV INFECTION
     Route: 048
     Dates: start: 20080729, end: 20081020
  2. DARUNAVIR(TMC114) [Concomitant]
     Indication: HIV INFECTION
     Route: 048
     Dates: start: 20080729, end: 20081020

REACTIONS (1)
  - ABDOMINAL PAIN UPPER [None]
